FAERS Safety Report 5189402-6 (Version None)
Quarter: 2006Q4

REPORT INFORMATION
  Report Type: 
  Country: None (occurrence: None)
  Receive Date: 20061218
  Receipt Date: 20061206
  Transmission Date: 20070319
  Serious: Yes (Hospitalization, Other)
  Sender: FDA-Public Use
  Company Number: 430042M06USA

PATIENT
  Age: 41 Year
  Sex: Female

DRUGS (3)
  1. NOVANTRONE [Suspect]
     Indication: MULTIPLE SCLEROSIS
     Dosage: 5 MG/M2, 3 IN 1 MONTHS, INTRAVENOUS (NOT OTHERWISE SPECIFIED)
     Route: 042
     Dates: start: 20030301, end: 20050401
  2. REBIF [Concomitant]
  3. CELLCEPT [Concomitant]

REACTIONS (2)
  - ACUTE PROMYELOCYTIC LEUKAEMIA [None]
  - PANCYTOPENIA [None]
